FAERS Safety Report 9669508 (Version 1)
Quarter: 2013Q4

REPORT INFORMATION
  Report Type: Spontaneous
  Country: US (occurrence: None)
  Receive Date: 20131104
  Receipt Date: 20131104
  Transmission Date: 20140711
  Serious: No
  Sender: FDA-Public Use
  Company Number: None

PATIENT
  Age: 70 Year
  Sex: Male
  Weight: 111.13 kg

DRUGS (1)
  1. CYMBALTA 60 MG ELI LILL [Suspect]
     Dosage: 1  ONCE DAILY TAKEN BY MOUTH
     Route: 048

REACTIONS (8)
  - Sexual dysfunction [None]
  - Urinary retention [None]
  - Dysuria [None]
  - Somnolence [None]
  - Drug ineffective [None]
  - Pruritus [None]
  - Paraesthesia [None]
  - Feeling of body temperature change [None]
